FAERS Safety Report 19504400 (Version 3)
Quarter: 2021Q4

REPORT INFORMATION
  Report Type: Spontaneous
  Country: US (occurrence: US)
  Receive Date: 20210707
  Receipt Date: 20211006
  Transmission Date: 20220303
  Serious: No
  Sender: FDA-Public Use
  Company Number: US-CELGENE-USA-20210608546

PATIENT
  Age: 85 Year
  Sex: Male
  Weight: 68.55 kg

DRUGS (7)
  1. REVLIMID [Suspect]
     Active Substance: LENALIDOMIDE
     Indication: Myeloid leukaemia
     Dosage: 15 MILLIGRAM
     Route: 048
     Dates: start: 202106
  2. REVLIMID [Suspect]
     Active Substance: LENALIDOMIDE
     Indication: Plasma cell myeloma
     Dosage: 15 MILLIGRAM
     Route: 048
     Dates: start: 20210705, end: 20210923
  3. ACYCLOVIR [Concomitant]
     Active Substance: ACYCLOVIR
     Indication: Chronic myeloid leukaemia
     Route: 048
     Dates: start: 201006
  4. BACTRIM [Concomitant]
     Active Substance: SULFAMETHOXAZOLE\TRIMETHOPRIM
     Indication: Chronic myeloid leukaemia
     Route: 065
     Dates: start: 201006
  5. DEXAMETHASONE [Concomitant]
     Active Substance: DEXAMETHASONE
     Indication: Chronic myeloid leukaemia
     Route: 065
     Dates: start: 201006
  6. VELCADE [Concomitant]
     Active Substance: BORTEZOMIB
     Indication: Product used for unknown indication
     Route: 065
     Dates: start: 201006
  7. NORCO [Concomitant]
     Active Substance: ACETAMINOPHEN\HYDROCODONE BITARTRATE
     Indication: Product used for unknown indication
     Route: 065
     Dates: start: 20210511

REACTIONS (2)
  - Blister [Unknown]
  - Rash [Recovered/Resolved]

NARRATIVE: CASE EVENT DATE: 20210101
